FAERS Safety Report 21060268 (Version 3)
Quarter: 2023Q4

REPORT INFORMATION
  Report Type: Spontaneous
  Country: US (occurrence: US)
  Receive Date: 20220708
  Receipt Date: 20231130
  Transmission Date: 20240110
  Serious: No
  Sender: FDA-Public Use
  Company Number: US-SA-SAC20220704001017

PATIENT
  Age: 60 Year
  Sex: Female

DRUGS (3)
  1. DUPIXENT [Suspect]
     Active Substance: DUPILUMAB
     Indication: Dermatitis atopic
     Dosage: 300 MG, QOW
     Route: 058
  2. DUPIXENT [Suspect]
     Active Substance: DUPILUMAB
     Indication: Eczema
  3. DUPIXENT [Suspect]
     Active Substance: DUPILUMAB
     Indication: Asthma

REACTIONS (2)
  - Dry eye [Unknown]
  - Eye pruritus [Unknown]
